FAERS Safety Report 24268286 (Version 1)
Quarter: 2024Q3

REPORT INFORMATION
  Report Type: Spontaneous
  Country: US (occurrence: US)
  Receive Date: 20240830
  Receipt Date: 20240830
  Transmission Date: 20241017
  Serious: No
  Sender: PFIZER
  Company Number: US-PFIZER INC-202400242382

PATIENT
  Age: 56 Year
  Sex: Female

DRUGS (5)
  1. VELSIPITY [Suspect]
     Active Substance: ETRASIMOD ARGININE
     Indication: Abdominal distension
     Dosage: UNK
  2. VELSIPITY [Suspect]
     Active Substance: ETRASIMOD ARGININE
     Indication: Abdominal pain
  3. VELSIPITY [Suspect]
     Active Substance: ETRASIMOD ARGININE
     Indication: Mucous stools
  4. VELSIPITY [Suspect]
     Active Substance: ETRASIMOD ARGININE
     Indication: Defaecation urgency
  5. VELSIPITY [Suspect]
     Active Substance: ETRASIMOD ARGININE
     Indication: Constipation

REACTIONS (1)
  - Inflammation [Unknown]
